FAERS Safety Report 24316010 (Version 1)
Quarter: 2024Q3

REPORT INFORMATION
  Report Type: Spontaneous
  Country: AU (occurrence: AU)
  Receive Date: 20240913
  Receipt Date: 20240913
  Transmission Date: 20241016
  Serious: Yes (Other)
  Sender: RANBAXY
  Company Number: AU-SUN PHARMACEUTICAL INDUSTRIES LTD-2024R1-466554

PATIENT
  Age: 85 Year
  Sex: Female

DRUGS (6)
  1. METOPROLOL [Suspect]
     Active Substance: METOPROLOL
     Indication: Product used for unknown indication
     Dosage: UNK (12.5 MILLIGRAM, INTERVAL-1 DAY)
     Route: 065
  2. ROSUVASTATIN [Suspect]
     Active Substance: ROSUVASTATIN\ROSUVASTATIN CALCIUM
     Indication: Product used for unknown indication
     Dosage: UNK (10 MILLIGRAM)
     Route: 065
  3. TELMISARTAN [Suspect]
     Active Substance: TELMISARTAN
     Indication: Product used for unknown indication
     Dosage: UNK (40 MILLIGRAM)
     Route: 065
  4. ALLOPURINOL [Suspect]
     Active Substance: ALLOPURINOL
     Indication: Product used for unknown indication
     Dosage: 100 MILLIGRAM, DAILY
     Route: 065
  5. LERCANIDIPINE [Suspect]
     Active Substance: LERCANIDIPINE
     Indication: Product used for unknown indication
     Dosage: UNK (5 MILLIGRAM)
     Route: 065
  6. FLUTICASONE PROPIONATE\SALMETEROL XINAFOATE [Suspect]
     Active Substance: FLUTICASONE PROPIONATE\SALMETEROL XINAFOATE
     Indication: Product used for unknown indication
     Dosage: UNK (INTERVAL: 1 DAY)
     Route: 065

REACTIONS (24)
  - Autonomic neuropathy [Unknown]
  - Clostridium difficile infection [Unknown]
  - Encephalopathy [Unknown]
  - Meningitis aseptic [Unknown]
  - Sjogren^s syndrome [Unknown]
  - Small fibre neuropathy [Unknown]
  - Asthenia [Unknown]
  - Clumsiness [Unknown]
  - Cognitive disorder [Unknown]
  - COVID-19 [Unknown]
  - Cranial nerve disorder [Unknown]
  - Eye pain [Unknown]
  - Gait disturbance [Unknown]
  - Giant cell arteritis [Unknown]
  - Hypercalcaemia [Unknown]
  - Hypoaesthesia [Unknown]
  - Jaw disorder [Unknown]
  - Mononeuropathy multiplex [Unknown]
  - Myelitis [Unknown]
  - Optic neuropathy [Unknown]
  - Oral discomfort [Unknown]
  - Paraesthesia [Unknown]
  - Peripheral sensorimotor neuropathy [Unknown]
  - Red blood cell sedimentation rate increased [Unknown]

NARRATIVE: CASE EVENT DATE: 20240419
